FAERS Safety Report 23634963 (Version 1)
Quarter: 2024Q1

REPORT INFORMATION
  Report Type: Report from Study
  Country: US (occurrence: US)
  Receive Date: 20240315
  Receipt Date: 20240315
  Transmission Date: 20240410
  Serious: Yes (Other)
  Sender: FDA-Public Use
  Company Number: US-ABBVIE-5679074

PATIENT
  Sex: Female

DRUGS (1)
  1. QULIPTA [Suspect]
     Active Substance: ATOGEPANT
     Indication: Product used for unknown indication
     Dosage: STRENGTH- ATOGEPANT 30MG TAB
     Route: 048

REACTIONS (2)
  - Knee arthroplasty [Unknown]
  - Gait disturbance [Not Recovered/Not Resolved]
